FAERS Safety Report 9819234 (Version 1)
Quarter: 2014Q1

REPORT INFORMATION
  Report Type: Report from Study
  Country: US (occurrence: US)
  Receive Date: 20140115
  Receipt Date: 20140115
  Transmission Date: 20141002
  Serious: Yes (Life-Threatening)
  Sender: FDA-Public Use
  Company Number: US-ABBVIE-14P-163-1190459-00

PATIENT
  Age: 60 Year
  Sex: Male
  Weight: 46.7 kg

DRUGS (2)
  1. DEPAKOTE [Suspect]
     Indication: BIPOLAR DISORDER
     Route: 048
     Dates: start: 20121011, end: 20130626
  2. LURASIDONE [Concomitant]
     Indication: BIPOLAR DISORDER
     Route: 048
     Dates: start: 20121011, end: 20130626

REACTIONS (1)
  - Hypokalaemia [Recovered/Resolved]
